FAERS Safety Report 9770250 (Version 8)
Quarter: 2014Q2

REPORT INFORMATION
  Report Type: Report from Study
  Country: CA (occurrence: CA)
  Receive Date: 20131218
  Receipt Date: 20140627
  Transmission Date: 20141212
  Serious: Yes (Other)
  Sender: FDA-Public Use
  Company Number: CA-ROCHE-1317063

PATIENT
  Age: 37 Year
  Sex: Female
  Weight: 62.1 kg

DRUGS (6)
  1. HERCEPTIN [Suspect]
     Indication: PRODUCT USED FOR UNKNOWN INDICATION
     Route: 065
     Dates: start: 2009, end: 20140520
  2. PERJETA [Suspect]
     Indication: BREAST CANCER
     Dosage: LOADING DOSE
     Route: 042
     Dates: start: 20140120
  3. PERJETA [Suspect]
     Dosage: MAINTAINENCE
     Route: 042
     Dates: start: 20140210
  4. EZETROL [Concomitant]
     Route: 065
     Dates: start: 201306
  5. ZOPICLONE [Concomitant]
     Route: 065
     Dates: start: 201307
  6. PANTOLOC [Concomitant]

REACTIONS (21)
  - Tumour excision [Unknown]
  - Lymphadenectomy [Unknown]
  - Depression [Unknown]
  - Metastasis [Unknown]
  - Chest pain [Unknown]
  - Haemoglobin decreased [Not Recovered/Not Resolved]
  - Epistaxis [Not Recovered/Not Resolved]
  - Rhinorrhoea [Unknown]
  - Diarrhoea [Not Recovered/Not Resolved]
  - Anxiety [Unknown]
  - Bradycardia [Unknown]
  - Nausea [Recovered/Resolved]
  - Red blood cell count decreased [Unknown]
  - Haematocrit decreased [Unknown]
  - Neutrophil count increased [Unknown]
  - Lymphocyte count decreased [Unknown]
  - Nasopharyngitis [Recovering/Resolving]
  - Dyspnoea [Not Recovered/Not Resolved]
  - Vomiting [Not Recovered/Not Resolved]
  - Fatigue [Not Recovered/Not Resolved]
  - Epistaxis [Not Recovered/Not Resolved]
